FAERS Safety Report 10042668 (Version 3)
Quarter: 2014Q2

REPORT INFORMATION
  Report Type: Spontaneous
  Country: IE (occurrence: IE)
  Receive Date: 20140327
  Receipt Date: 20140411
  Transmission Date: 20141212
  Serious: Yes (Hospitalization, Other)
  Sender: FDA-Public Use
  Company Number: PHFR2014IE002391

PATIENT
  Age: 54 Year
  Sex: Male

DRUGS (1)
  1. CLOZARIL [Suspect]
     Dosage: UNK
     Route: 048
     Dates: start: 20081021

REACTIONS (11)
  - Localised intraabdominal fluid collection [Unknown]
  - Septic shock [Unknown]
  - Cerebrovascular accident [Recovering/Resolving]
  - Multi-organ failure [Recovering/Resolving]
  - Hemiparesis [Recovering/Resolving]
  - Renal impairment [Unknown]
  - Circulatory collapse [Unknown]
  - Ileus paralytic [Unknown]
  - Faecaloma [Unknown]
  - White blood cell count increased [Recovered/Resolved]
  - Neutrophil count increased [Recovered/Resolved]
